FAERS Safety Report 8484748-8 (Version None)
Quarter: 2012Q3

REPORT INFORMATION
  Report Type: 
  Country: None (occurrence: None)
  Receive Date: 20120703
  Receipt Date: 20120613
  Transmission Date: 20120928
  Serious: No
  Sender: FDA-Public Use
  Company Number: US-TEVA-342579USA

PATIENT
  Sex: Male
  Weight: 93.524 kg

DRUGS (12)
  1. OXYCODONE HCL [Concomitant]
     Route: 048
  2. METHADONE HYDROCHLORIDE [Concomitant]
     Indication: BACK PAIN
     Dosage: 160 MILLIGRAM;
     Route: 048
  3. GABAPENTIN [Concomitant]
     Indication: MUSCLE SPASMS
     Dosage: 1200 MILLIGRAM;
     Route: 048
  4. FISH OIL [Concomitant]
     Route: 048
  5. CARVEDILOL [Concomitant]
     Indication: BLOOD PRESSURE
     Dosage: 12.5 MILLIGRAM;
     Route: 048
  6. AMLODIPINE [Concomitant]
     Indication: BLOOD PRESSURE
     Dosage: 5 MILLIGRAM;
     Route: 048
  7. TESTOSTERONE [Concomitant]
     Indication: BLOOD TESTOSTERONE DECREASED
     Dosage: 288000 MILLIGRAM;
     Route: 030
  8. NUVIGIL [Suspect]
     Indication: SLEEP APNOEA SYNDROME
     Route: 048
     Dates: start: 20120517
  9. BENAZEPRIL [Concomitant]
     Indication: BLOOD PRESSURE
     Dosage: 80 MILLIGRAM;
     Route: 048
  10. DOXAZOSIN MESYLATE [Concomitant]
     Indication: BLADDER DISORDER
     Route: 048
  11. SUPER BETA PROSTATE [Concomitant]
     Route: 048
  12. TAMSULOSIN HCL [Concomitant]
     Indication: BLOOD PRESSURE
     Dosage: .4 MILLIGRAM;
     Route: 048

REACTIONS (2)
  - DRUG INEFFECTIVE [None]
  - DIARRHOEA [None]
